FAERS Safety Report 26088575 (Version 2)
Quarter: 2025Q4

REPORT INFORMATION
  Report Type: Spontaneous
  Country: US (occurrence: US)
  Receive Date: 20251125
  Receipt Date: 20251231
  Transmission Date: 20260118
  Serious: No
  Sender: PFIZER
  Company Number: US-PFIZER INC-202500229318

PATIENT
  Sex: Male

DRUGS (1)
  1. MARSTACIMAB [Suspect]
     Active Substance: MARSTACIMAB
     Dosage: UNK

REACTIONS (3)
  - Haemorrhage [Unknown]
  - Fall [Unknown]
  - Arthralgia [Unknown]
